FAERS Safety Report 9732550 (Version 3)
Quarter: 2014Q1

REPORT INFORMATION
  Report Type: Spontaneous
  Country: GB (occurrence: GB)
  Receive Date: 20131205
  Receipt Date: 20140114
  Transmission Date: 20141002
  Serious: Yes (Other)
  Sender: FDA-Public Use
  Company Number: GB-SA-2013SA123530

PATIENT
  Sex: Male

DRUGS (3)
  1. APROVEL [Suspect]
     Indication: HYPERTENSION
     Route: 048
     Dates: start: 20131120
  2. METFORMIN [Suspect]
     Indication: DIABETES MELLITUS
     Dosage: DOSAGE: 1 BD
     Route: 048
  3. GLICLAZIDE [Suspect]
     Indication: PRODUCT USED FOR UNKNOWN INDICATION
     Route: 065

REACTIONS (4)
  - Diabetes mellitus inadequate control [Unknown]
  - Visual impairment [Recovered/Resolved]
  - Halo vision [Recovered/Resolved]
  - Photopsia [Recovered/Resolved]
